FAERS Safety Report 10453252 (Version 6)
Quarter: 2015Q1

REPORT INFORMATION
  Report Type: Report from Study
  Country: US (occurrence: US)
  Receive Date: 20140915
  Receipt Date: 20150306
  Transmission Date: 20150720
  Serious: Yes (Hospitalization, Other)
  Sender: FDA-Public Use
  Company Number: US-SA-2014SA120208

PATIENT
  Age: 54 Year
  Sex: Male
  Weight: 89.99 kg

DRUGS (13)
  1. TAMIFLU [Concomitant]
     Active Substance: OSELTAMIVIR PHOSPHATE
  2. AMLODIPINE BESILATE [Concomitant]
     Active Substance: AMLODIPINE BESYLATE
     Indication: ESSENTIAL HYPERTENSION
     Route: 048
     Dates: start: 20140925
  3. BETASERON [Concomitant]
     Active Substance: INTERFERON BETA-1B
     Dates: start: 20101005
  4. LOPRESSOR [Concomitant]
     Active Substance: METOPROLOL TARTRATE
     Indication: ESSENTIAL HYPERTENSION
     Route: 048
     Dates: start: 20140924
  5. AUBAGIO [Suspect]
     Active Substance: TERIFLUNOMIDE
     Indication: MULTIPLE SCLEROSIS
     Dosage: FREQUENCY: QHS
     Route: 048
     Dates: end: 20150215
  6. PANTOPRAZOLE SODIUM [Concomitant]
     Active Substance: PANTOPRAZOLE SODIUM
     Indication: AORTIC DISSECTION
     Dosage: DELAYED RELEASE
     Route: 048
     Dates: start: 20140925
  7. TAMSULOSIN HYDROCHLORIDE. [Concomitant]
     Active Substance: TAMSULOSIN HYDROCHLORIDE
     Indication: URINARY INCONTINENCE
     Route: 048
     Dates: start: 20140925
  8. AUBAGIO [Suspect]
     Active Substance: TERIFLUNOMIDE
     Indication: MULTIPLE SCLEROSIS
     Dosage: FREQUENCY: QHS
     Route: 048
  9. KEPPRA [Concomitant]
     Active Substance: LEVETIRACETAM
     Indication: SEIZURE
     Route: 048
     Dates: start: 20140924
  10. SYMBICORT [Concomitant]
     Active Substance: BUDESONIDE\FORMOTEROL FUMARATE DIHYDRATE
     Indication: DYSPNOEA
     Dosage: DOSE: 160-4.5 MCG/ACT, INHALTION ORALLY DOSE:2 PUFF(S)
     Route: 055
     Dates: start: 20140924
  11. AUBAGIO [Suspect]
     Active Substance: TERIFLUNOMIDE
     Indication: MULTIPLE SCLEROSIS
     Dosage: FREQUENCY: QHS
     Route: 048
     Dates: start: 20140314
  12. LIPITOR [Concomitant]
     Active Substance: ATORVASTATIN CALCIUM
     Indication: AORTIC DISSECTION
     Dosage: IN THE EVENING
     Route: 048
     Dates: start: 20150116
  13. SYMBICORT [Concomitant]
     Active Substance: BUDESONIDE\FORMOTEROL FUMARATE DIHYDRATE
     Indication: RESPIRATORY DISORDER
     Dosage: DOSE: 160-4.5 MCG/ACT, INHALTION ORALLY DOSE:2 PUFF(S)
     Route: 055
     Dates: start: 20140924

REACTIONS (9)
  - Unevaluable event [Unknown]
  - Confusional state [Unknown]
  - Seizure [Unknown]
  - Gait disturbance [Unknown]
  - Asthenia [Not Recovered/Not Resolved]
  - Influenza [Unknown]
  - Dysstasia [Unknown]
  - Aortic rupture [Unknown]
  - Drug dose omission [Unknown]
